FAERS Safety Report 8117407-1 (Version None)
Quarter: 2012Q1

REPORT INFORMATION
  Report Type: 
  Country: None (occurrence: None)
  Receive Date: 20120206
  Receipt Date: 20120125
  Transmission Date: 20120608
  Serious: Yes (Hospitalization, Other)
  Sender: FDA-Public Use
  Company Number: FR-BRISTOL-MYERS SQUIBB COMPANY-16371890

PATIENT
  Age: 67 Year
  Sex: Male
  Weight: 77 kg

DRUGS (1)
  1. IPILIMUMAB [Suspect]
     Indication: MALIGNANT MELANOMA
     Dosage: NO OF INFUSIONS 4 INFUSION DATES 28SEP11,18OCT11,8NOV11,29NOV11.
     Dates: start: 20110928

REACTIONS (9)
  - ASTHENIA [None]
  - NAUSEA [None]
  - DECREASED APPETITE [None]
  - WEIGHT DECREASED [None]
  - MYALGIA [None]
  - PSYCHOMOTOR SKILLS IMPAIRED [None]
  - THYROXINE DECREASED [None]
  - HEADACHE [None]
  - BLOOD THYROID STIMULATING HORMONE DECREASED [None]
